FAERS Safety Report 25806804 (Version 1)
Quarter: 2025Q3

REPORT INFORMATION
  Report Type: Spontaneous
  Country: US (occurrence: None)
  Receive Date: 20250915
  Receipt Date: 20250915
  Transmission Date: 20251020
  Serious: Yes (Hospitalization)
  Sender: FDA-CTU
  Company Number: None

PATIENT
  Age: 30 Year
  Sex: Female
  Weight: 74.25 kg

DRUGS (1)
  1. TIRZEPATIDE [Suspect]
     Active Substance: TIRZEPATIDE

REACTIONS (7)
  - Menstruation irregular [None]
  - Ectopic pregnancy [None]
  - Exposure during pregnancy [None]
  - Toxicity to various agents [None]
  - Myelosuppression [None]
  - Pancytopenia [None]
  - Liver injury [None]

NARRATIVE: CASE EVENT DATE: 20250729
